FAERS Safety Report 5156083-7 (Version None)
Quarter: 2006Q4

REPORT INFORMATION
  Report Type: 
  Country: None (occurrence: None)
  Receive Date: 20061122
  Receipt Date: 20061113
  Transmission Date: 20070319
  Serious: Yes (Hospitalization)
  Sender: FDA-Public Use
  Company Number: PHBS2006IE17689

PATIENT
  Age: 58 Year
  Sex: Female

DRUGS (7)
  1. DICLOFENAC SODIUM [Suspect]
     Dosage: 50 MG, PRN
  2. NEULASTA [Suspect]
     Indication: CHEMOTHERAPY
     Dosage: 6 MG/DAY
     Route: 058
     Dates: start: 20060725
  3. DOXORUBICIN HYDROCHLORIDE [Concomitant]
     Dosage: 1 DF, BIW
  4. CYCLOPHOSPHAMIDE [Concomitant]
     Dosage: 1 DF, BIW
  5. PACLITAXEL [Concomitant]
     Dosage: 1 DF, BIW
  6. GEMCITABINE [Concomitant]
     Dosage: 1 DF, BIW
  7. DOXAZOSIN MESYLATE [Concomitant]
     Dosage: 4 MG/DAY

REACTIONS (12)
  - BLISTER [None]
  - BLOOD CREATININE INCREASED [None]
  - BLOOD UREA INCREASED [None]
  - BODY TEMPERATURE INCREASED [None]
  - CELLULITIS [None]
  - HAEMOGLOBIN DECREASED [None]
  - MOBILITY DECREASED [None]
  - NEUTROPENIA [None]
  - NEUTROPENIC SEPSIS [None]
  - OEDEMA PERIPHERAL [None]
  - RENAL IMPAIRMENT [None]
  - STAPHYLOCOCCAL INFECTION [None]
